FAERS Safety Report 10157974 (Version 3)
Quarter: 2014Q2

REPORT INFORMATION
  Report Type: Spontaneous
  Country: FR (occurrence: FR)
  Receive Date: 20140507
  Receipt Date: 20140529
  Transmission Date: 20141212
  Serious: Yes (Other)
  Sender: FDA-Public Use
  Company Number: FR-GILEAD-2014-0099133

PATIENT
  Sex: Female

DRUGS (3)
  1. STRIBILD [Suspect]
     Indication: HIV INFECTION
     Dosage: UNK
     Route: 065
  2. TRUVADA [Concomitant]
     Route: 065
  3. REYATAZ [Concomitant]

REACTIONS (2)
  - VIIth nerve paralysis [Not Recovered/Not Resolved]
  - Bone cancer [Not Recovered/Not Resolved]
